FAERS Safety Report 7719111-8 (Version None)
Quarter: 2011Q3

REPORT INFORMATION
  Report Type: 
  Country: None (occurrence: None)
  Receive Date: 20110824
  Receipt Date: 20110812
  Transmission Date: 20111222
  Serious: Yes (Other)
  Sender: FDA-Public Use
  Company Number: 2011P1007741

PATIENT
  Age: 33 Year
  Sex: Female

DRUGS (2)
  1. ALBENDAZOLE (NO PREF. NAME) [Suspect]
     Indication: HEPATIC ECHINOCOCCIASIS
     Dosage: 400 MG;BID;PO ; 400 MG;BID;PO
     Route: 048
     Dates: start: 20110101, end: 20110101
  2. ALBENDAZOLE (NO PREF. NAME) [Suspect]
     Indication: HEPATIC ECHINOCOCCIASIS
     Dosage: 400 MG;BID;PO ; 400 MG;BID;PO
     Route: 048
     Dates: start: 20110521, end: 20110617

REACTIONS (2)
  - HEPATIC ECHINOCOCCIASIS [None]
  - ALOPECIA [None]
